FAERS Safety Report 5151566-8 (Version None)
Quarter: 2006Q4

REPORT INFORMATION
  Report Type: 
  Country: None (occurrence: None)
  Receive Date: 20061115
  Receipt Date: 20060314
  Transmission Date: 20070319
  Serious: Yes (Hospitalization)
  Sender: FDA-Public Use
  Company Number: FR-ROCHE-440310

PATIENT
  Age: 52 Year
  Sex: Male
  Weight: 64 kg

DRUGS (1)
  1. PEG-INTERFERON ALFA 2A (RO 25-8310) [Suspect]
     Dosage: DOSAGE FORM REPORTED AS SYRINGE.
     Route: 058
     Dates: start: 20051010

REACTIONS (1)
  - REMOVAL OF TRANSPLANTED ORGAN [None]
